FAERS Safety Report 5975742-7 (Version None)
Quarter: 2008Q4

REPORT INFORMATION
  Report Type: 
  Country: None (occurrence: None)
  Receive Date: 20081202
  Receipt Date: 20081124
  Transmission Date: 20090506
  Serious: Yes (Death)
  Sender: FDA-Public Use
  Company Number: DE-AVENTIS-200813064DE

PATIENT
  Age: 74 Year
  Sex: Female
  Weight: 56.2 kg

DRUGS (5)
  1. TAXOTERE [Suspect]
     Dosage: DOSE: 80/20
     Route: 042
     Dates: start: 20081029, end: 20081029
  2. OXALIPLATIN [Suspect]
     Route: 042
     Dates: start: 20081030, end: 20081030
  3. BELOC                              /00376903/ [Concomitant]
     Indication: DRUG USE FOR UNKNOWN INDICATION
     Dosage: DOSE: 0.5-0-0.5
  4. CREON [Concomitant]
     Indication: DRUG USE FOR UNKNOWN INDICATION
     Dosage: DOSE: 1-2-1
  5. TORSEMIDE [Concomitant]
     Indication: DRUG USE FOR UNKNOWN INDICATION
     Dosage: DOSE: 2-0-0

REACTIONS (1)
  - SUDDEN DEATH [None]
